FAERS Safety Report 9183677 (Version 1)
Quarter: 2013Q1

REPORT INFORMATION
  Report Type: Spontaneous
  Country: US (occurrence: US)
  Receive Date: 20130322
  Receipt Date: 20130322
  Transmission Date: 20140127
  Serious: No
  Sender: FDA-Public Use
  Company Number: US-BRISTOL-MYERS SQUIBB COMPANY-16581423

PATIENT
  Age: 83 Year
  Sex: Male

DRUGS (10)
  1. ERBITUX [Suspect]
     Indication: HEAD AND NECK CANCER
     Dosage: LAST DOSE ON 14JUN2012
     Route: 042
     Dates: start: 20120419
  2. NEXIUM [Concomitant]
  3. ENALAPRIL [Concomitant]
  4. METOPROLOL [Concomitant]
  5. LIPITOR [Concomitant]
  6. MAGNESIUM [Concomitant]
  7. KLONOPIN [Concomitant]
  8. PARAN [Concomitant]
  9. SPIRIVA [Concomitant]
  10. PRADAXA [Concomitant]

REACTIONS (1)
  - Osteoarthritis [Not Recovered/Not Resolved]
